FAERS Safety Report 20906612 (Version 1)
Quarter: 2022Q2

REPORT INFORMATION
  Report Type: Spontaneous
  Country: US (occurrence: None)
  Receive Date: 20220602
  Receipt Date: 20220602
  Transmission Date: 20220720
  Serious: No
  Sender: FDA-Public Use
  Company Number: None

PATIENT
  Sex: Female

DRUGS (1)
  1. HUMIRA [Suspect]
     Active Substance: ADALIMUMAB
     Indication: Rheumatoid arthritis
     Dosage: 40MG EVERY 14 DAYS SUBCUTANEOUS?
     Route: 058
     Dates: start: 20211223

REACTIONS (3)
  - Drug ineffective [None]
  - Therapy change [None]
  - Rheumatoid arthritis [None]
